FAERS Safety Report 9456802 (Version 7)
Quarter: 2014Q3

REPORT INFORMATION
  Report Type: Report from Study
  Country: JP (occurrence: JP)
  Receive Date: 20130813
  Receipt Date: 20140709
  Transmission Date: 20150326
  Serious: Yes (Other)
  Sender: FDA-Public Use
  Company Number: JP-AMGEN-JPNSP2013056514

PATIENT
  Age: 62 Year
  Sex: Male

DRUGS (14)
  1. LOXONIN [Concomitant]
     Active Substance: LOXOPROFEN SODIUM
     Dosage: UNKNOWN
     Route: 048
  2. OXINORM                            /00045603/ [Concomitant]
     Dosage: UNK
     Route: 050
  3. MUCOSTA [Concomitant]
     Active Substance: REBAMIPIDE
     Dosage: 100 MG, TID
     Route: 048
  4. FENTANYL CITRATE. [Concomitant]
     Active Substance: FENTANYL CITRATE
     Dosage: 1 DF, QD
     Route: 050
     Dates: start: 201305
  5. HARNAL [Concomitant]
     Active Substance: TAMSULOSIN HYDROCHLORIDE
     Dosage: UNKNOWN
     Route: 065
  6. DENOSUMAB [Suspect]
     Active Substance: DENOSUMAB
     Indication: METASTASES TO BONE
     Dosage: 120 MG, UNK
     Route: 058
     Dates: start: 20130509, end: 20130801
  7. ZEPOLAS [Concomitant]
     Dosage: UNK
     Route: 050
  8. CASODEX [Concomitant]
     Active Substance: BICALUTAMIDE
     Dosage: UNK
     Route: 065
     Dates: start: 20091119, end: 20110120
  9. FENTOS [Concomitant]
     Active Substance: FENTANYL
     Route: 050
     Dates: start: 201305
  10. DENOTAS [Concomitant]
     Active Substance: CALCIUM CARBONATE\CHOLECALCIFEROL\MAGNESIUM CARBONATE
     Dosage: 2 DF, QD
     Route: 048
     Dates: start: 20130607, end: 20130829
  11. DECADRON [Concomitant]
     Active Substance: DEXAMETHASONE
     Dosage: UNKNOWN
     Route: 065
     Dates: start: 20110218, end: 20131011
  12. CALCICHEW [Concomitant]
     Active Substance: CALCIUM CARBONATE
     Dosage: 2 DF, QD
     Route: 048
     Dates: start: 20130509, end: 20130606
  13. DOCETAXEL [Concomitant]
     Active Substance: DOCETAXEL
     Dosage: UNKNOWN
     Route: 041
     Dates: start: 20120807, end: 20130918
  14. ESTRACYT                           /00327002/ [Concomitant]
     Dosage: UNK
     Route: 065
     Dates: start: 20120315, end: 20120719

REACTIONS (1)
  - Osteonecrosis of jaw [Not Recovered/Not Resolved]

NARRATIVE: CASE EVENT DATE: 20130725
